FAERS Safety Report 12122313 (Version 3)
Quarter: 2016Q2

REPORT INFORMATION
  Report Type: Spontaneous
  Country: JP (occurrence: JP)
  Receive Date: 20160226
  Receipt Date: 20160428
  Transmission Date: 20160815
  Serious: Yes (Death, Hospitalization, Other)
  Sender: FDA-Public Use
  Company Number: PHJP2016JP001866

PATIENT
  Age: 92 Year
  Sex: Female
  Weight: 30 kg

DRUGS (13)
  1. YOKUKANSAN [Concomitant]
     Active Substance: HERBALS
     Indication: PRODUCT USED FOR UNKNOWN INDICATION
     Dosage: 10 G, BID
     Route: 048
     Dates: start: 20150828
  2. PENLES [Concomitant]
     Active Substance: LIDOCAINE
     Indication: PRODUCT USED FOR UNKNOWN INDICATION
     Dosage: 2 DF, QD
     Route: 065
     Dates: start: 20150828
  3. LANSOPRAZOLE. [Concomitant]
     Active Substance: LANSOPRAZOLE
     Indication: PRODUCT USED FOR UNKNOWN INDICATION
     Dosage: 15 MG, QD
     Route: 048
     Dates: start: 20150810
  4. LIMAPROST ALFADEX [Concomitant]
     Active Substance: LIMAPROST
     Dosage: 15 UG, TID
     Route: 048
     Dates: start: 20160204, end: 20160208
  5. NEUPRO [Concomitant]
     Active Substance: ROTIGOTINE
     Indication: PRODUCT USED FOR UNKNOWN INDICATION
     Dosage: 1 DF, QD
     Route: 065
     Dates: start: 20150828
  6. LANSOPRAZOLE. [Concomitant]
     Active Substance: LANSOPRAZOLE
     Dosage: 15 MG, QD
     Route: 048
     Dates: start: 20160204, end: 20160208
  7. FRANDOL [Concomitant]
     Active Substance: ISOSORBIDE DINITRATE
     Indication: PRODUCT USED FOR UNKNOWN INDICATION
     Dosage: 40 MG, QD
     Route: 065
     Dates: start: 20150828
  8. EXELON PATCH [Suspect]
     Active Substance: RIVASTIGMINE
     Dosage: 4.6 MG/24H (PATCH 5, 09 MG RIVASTIGMINE BASE)
     Route: 062
     Dates: start: 20150921, end: 20151231
  9. ALFACALCIDOL [Concomitant]
     Active Substance: ALFACALCIDOL
     Indication: PRODUCT USED FOR UNKNOWN INDICATION
     Dosage: 0.25 UG, QD
     Route: 065
     Dates: start: 20150828
  10. LIMAPROST ALFADEX [Concomitant]
     Active Substance: LIMAPROST
     Indication: PRODUCT USED FOR UNKNOWN INDICATION
     Dosage: 15 UG, TID
     Route: 048
     Dates: start: 20150828
  11. FRANDOL [Concomitant]
     Active Substance: ISOSORBIDE DINITRATE
     Dosage: 40 MG, QD
     Route: 065
     Dates: start: 20160204, end: 20160208
  12. EXELON PATCH [Suspect]
     Active Substance: RIVASTIGMINE
     Indication: DEMENTIA ALZHEIMER^S TYPE
     Dosage: 1.9 MG/24H (PATCH 2.5, 4.5 MG RIVASTIGMINE BASE) (CM2)
     Route: 062
     Dates: start: 20150824
  13. PENLES [Concomitant]
     Active Substance: LIDOCAINE
     Dosage: 2 DF, QD
     Route: 065
     Dates: start: 20160204

REACTIONS (16)
  - Dyspnoea [Fatal]
  - Cardiac failure [Fatal]
  - Cholangitis [Unknown]
  - Somnolence [Unknown]
  - Decubitus ulcer [Unknown]
  - Decreased appetite [Unknown]
  - Cholecystitis acute [Unknown]
  - Peripheral arterial occlusive disease [Unknown]
  - Anaemia [Unknown]
  - Hypertension [Unknown]
  - Pneumonia [Fatal]
  - Blood pressure decreased [Fatal]
  - Pain [Recovered/Resolved]
  - Angina pectoris [Unknown]
  - Nutritional condition abnormal [Unknown]
  - Depressed level of consciousness [Unknown]

NARRATIVE: CASE EVENT DATE: 20150926
